FAERS Safety Report 12744509 (Version 1)
Quarter: 2016Q3

REPORT INFORMATION
  Report Type: Spontaneous
  Country: US (occurrence: US)
  Receive Date: 20160914
  Receipt Date: 20160914
  Transmission Date: 20161109
  Serious: No
  Sender: FDA-Public Use
  Company Number: US-JAZZ-2016-US-009447

PATIENT
  Sex: Female

DRUGS (2)
  1. XYREM [Suspect]
     Active Substance: SODIUM OXYBATE
     Indication: NARCOLEPSY
     Dosage: UNKNOWN
     Route: 048
  2. XYREM [Suspect]
     Active Substance: SODIUM OXYBATE
     Indication: SOMNOLENCE

REACTIONS (6)
  - Bradyphrenia [Unknown]
  - Headache [Unknown]
  - Depression [Unknown]
  - Anxiety [Unknown]
  - Night sweats [Unknown]
  - Drug administration error [Unknown]

NARRATIVE: CASE EVENT DATE: 201605
